FAERS Safety Report 4429859-9 (Version None)
Quarter: 2004Q3

REPORT INFORMATION
  Report Type: 
  Country: None (occurrence: None)
  Receive Date: 20040820
  Receipt Date: 20040812
  Transmission Date: 20050211
  Serious: Yes (Hospitalization)
  Sender: FDA-Public Use
  Company Number: US-JNJFOC-20040804406

PATIENT
  Sex: Female

DRUGS (8)
  1. DURAGESIC [Suspect]
     Route: 062
     Dates: start: 20010101
  2. OXYCODONE HCL [Concomitant]
     Dosage: ONE TO TWO TABLETS EVERY SIX TO EIGHT HOURS
     Route: 049
  3. PREMARIN [Concomitant]
     Route: 049
  4. METOCLOPRAMIDE [Concomitant]
     Route: 049
  5. PROTONIX [Concomitant]
     Route: 049
  6. FLAGYL [Concomitant]
     Route: 042
  7. CESEPIME [Concomitant]
     Route: 042
  8. ATIVAN [Concomitant]
     Dosage: AS NEEDED
     Route: 042

REACTIONS (5)
  - EXTRADURAL ABSCESS [None]
  - HYPERHIDROSIS [None]
  - OSTEOMYELITIS [None]
  - PHARMACEUTICAL PRODUCT COMPLAINT [None]
  - PYREXIA [None]
